FAERS Safety Report 9877196 (Version 2)
Quarter: 2014Q1

REPORT INFORMATION
  Report Type: Report from Study
  Country: FR (occurrence: FR)
  Receive Date: 20140206
  Receipt Date: 20140220
  Transmission Date: 20141002
  Serious: Yes (Hospitalization)
  Sender: FDA-Public Use
  Company Number: FR-VERTEX PHARMACEUTICALS INC-2014-000587

PATIENT
  Age: 52 Year
  Sex: Male
  Weight: 78 kg

DRUGS (15)
  1. TELAPREVIR [Suspect]
     Indication: HEPATITIS C
     Dosage: 1125 MG, BID
     Route: 048
     Dates: start: 20130408, end: 20130610
  2. CELLCEPT [Suspect]
     Indication: PROPHYLAXIS AGAINST TRANSPLANT REJECTION
     Dosage: DOSAGE FORM: UNKNOWN
     Route: 065
     Dates: start: 20080108
  3. INEXIUM [Suspect]
     Indication: ABDOMINAL PAIN UPPER
     Dosage: DOSAGE FORM: UNKNOWN
     Route: 065
     Dates: start: 20130225
  4. NOROXINE [Suspect]
     Indication: RENAL FAILURE
     Dosage: DOSAGE FORM: UNKNOWN
     Route: 065
     Dates: start: 20130225
  5. NOROXINE [Suspect]
     Indication: PROPHYLAXIS
  6. ADVAGRAF [Suspect]
     Indication: PROPHYLAXIS AGAINST TRANSPLANT REJECTION
     Dosage: DOSAGE FORM: UNKNOWN
     Route: 065
     Dates: start: 20090115
  7. QUESTRAN [Suspect]
     Indication: PRURITUS
     Dosage: DOSAGE FORM: UNKNOWN
     Route: 065
     Dates: start: 20090807
  8. ATARAX [Suspect]
     Indication: ANXIETY
     Dosage: DOSAGE FORM: UNKNOWN
     Route: 065
     Dates: start: 20130225
  9. NEORAL [Suspect]
     Indication: PROPHYLAXIS AGAINST TRANSPLANT REJECTION
     Dosage: DOSAGE FORM: UNKNOWN
     Route: 065
     Dates: start: 20130208, end: 20130708
  10. LASILIX [Suspect]
     Indication: OEDEMA
     Dosage: DOSAGE FORM: UNKNOWN
     Route: 065
     Dates: start: 20100112, end: 201312
  11. LASILIX [Suspect]
     Indication: RENAL FAILURE
     Dosage: DOSAGE FORM: UNKNOWN
     Route: 065
     Dates: start: 201312
  12. LASILIX [Suspect]
     Dosage: DOSAGE FORM: UNKNOWN
     Route: 065
  13. PEGASYS [Suspect]
     Indication: HEPATITIS C
     Dosage: DOSAGE FORM: UNKNOWN
     Route: 065
     Dates: start: 20130225, end: 20130610
  14. COPEGUS [Suspect]
     Indication: HEPATITIS C
     Dosage: DOSAGE FORM: UNKNOWN
     Route: 065
     Dates: start: 20130225, end: 20130610
  15. NEORECORMON [Suspect]
     Indication: ANAEMIA
     Dosage: DOSAGE FORM: UNKNOWN
     Route: 065
     Dates: start: 20130422, end: 20130707

REACTIONS (4)
  - Nephrotic syndrome [Not Recovered/Not Resolved]
  - Ascites [Not Recovered/Not Resolved]
  - Renal failure [Unknown]
  - Diarrhoea [Unknown]
